FAERS Safety Report 13457675 (Version 1)
Quarter: 2017Q2

REPORT INFORMATION
  Report Type: Spontaneous
  Country: FR (occurrence: FR)
  Receive Date: 20170419
  Receipt Date: 20170419
  Transmission Date: 20170830
  Serious: Yes (Hospitalization)
  Sender: FDA-Public Use
  Company Number: FR-ASPEN PHARMA TRADING LIMITED US-AG-2017-002707

PATIENT
  Age: 13 Year
  Sex: Male

DRUGS (3)
  1. BACTRIM [Concomitant]
     Active Substance: SULFAMETHOXAZOLE\TRIMETHOPRIM
     Indication: PRODUCT USED FOR UNKNOWN INDICATION
     Route: 048
  2. ARACYTINE [Suspect]
     Active Substance: CYTARABINE
     Indication: PRODUCT USED FOR UNKNOWN INDICATION
     Route: 058
     Dates: start: 20170130, end: 20170221
  3. LANVIS [Suspect]
     Active Substance: THIOGUANINE ANHYDROUS
     Indication: PRODUCT USED FOR UNKNOWN INDICATION
     Route: 048
     Dates: start: 20170130, end: 20170220

REACTIONS (3)
  - Venoocclusive liver disease [Recovered/Resolved]
  - Thrombocytopenia [Recovered/Resolved]
  - Haemorrhagic diathesis [Recovered/Resolved]

NARRATIVE: CASE EVENT DATE: 201703
